FAERS Safety Report 5527255-4 (Version None)
Quarter: 2007Q4

REPORT INFORMATION
  Report Type: 
  Country: None (occurrence: None)
  Receive Date: 20071128
  Receipt Date: 20071126
  Transmission Date: 20080405
  Serious: Yes (Disabling)
  Sender: FDA-Public Use
  Company Number: A0695791A

PATIENT
  Age: 36 Year
  Sex: Male

DRUGS (1)
  1. BC HEADACHE POWDER [Suspect]
     Indication: HEADACHE
     Route: 048
     Dates: end: 20071119

REACTIONS (15)
  - DARK CIRCLES UNDER EYES [None]
  - DEPENDENCE [None]
  - EYE PAIN [None]
  - FACE OEDEMA [None]
  - HEADACHE [None]
  - HEART RATE INCREASED [None]
  - HYPERHIDROSIS [None]
  - INTENTIONAL DRUG MISUSE [None]
  - IRRITABILITY [None]
  - NERVOUSNESS [None]
  - OCULAR HYPERAEMIA [None]
  - PALPITATIONS [None]
  - STRESS [None]
  - TINNITUS [None]
  - WEIGHT DECREASED [None]
